FAERS Safety Report 6074563-7 (Version None)
Quarter: 2009Q1

REPORT INFORMATION
  Report Type: 
  Country: None (occurrence: None)
  Receive Date: 20090206
  Receipt Date: 20090130
  Transmission Date: 20090719
  Serious: Yes (Other)
  Sender: FDA-Public Use
  Company Number: A0763969A

PATIENT

DRUGS (1)
  1. ASPIRIN [Suspect]

REACTIONS (10)
  - ANXIETY [None]
  - DISCOMFORT [None]
  - FEAR [None]
  - HAEMORRHAGE [None]
  - ILL-DEFINED DISORDER [None]
  - INJURY [None]
  - INTERNAL INJURY [None]
  - MALAISE [None]
  - PAIN [None]
  - SHOCK [None]
